FAERS Safety Report 6289271-7 (Version None)
Quarter: 2009Q3

REPORT INFORMATION
  Report Type: 
  Country: None (occurrence: None)
  Receive Date: 20090730
  Receipt Date: 20080422
  Transmission Date: 20100115
  Serious: Yes (Other)
  Sender: FDA-Public Use
  Company Number: US-ASTRAZENECA-2006UW09067

PATIENT
  Age: 608 Month
  Sex: Male
  Weight: 96.3 kg

DRUGS (22)
  1. SEROQUEL [Suspect]
     Indication: ANXIETY
     Dosage: 25-100 MG
     Route: 048
     Dates: start: 20000101, end: 20060101
  2. SEROQUEL [Suspect]
     Indication: DEPRESSION
     Dosage: 25-100 MG
     Route: 048
     Dates: start: 20000101, end: 20060101
  3. SEROQUEL [Suspect]
     Indication: BIPOLAR DISORDER
     Dosage: 25-100 MG
     Route: 048
     Dates: start: 20000101, end: 20060101
  4. SEROQUEL [Suspect]
     Dosage: 25-100 MG
     Route: 048
     Dates: start: 20050216, end: 20060424
  5. SEROQUEL [Suspect]
     Dosage: 25-100 MG
     Route: 048
     Dates: start: 20050216, end: 20060424
  6. SEROQUEL [Suspect]
     Dosage: 25-100 MG
     Route: 048
     Dates: start: 20050216, end: 20060424
  7. RISPERDAL [Suspect]
     Indication: ANXIETY
     Dosage: 1 - 4 MG
     Dates: start: 19991101, end: 20051001
  8. RISPERDAL [Suspect]
     Indication: DEPRESSION
     Dosage: 1 - 4 MG
     Dates: start: 19991101, end: 20051001
  9. RISPERDAL [Suspect]
     Indication: BIPOLAR DISORDER
     Dosage: 1 - 4 MG
     Dates: start: 19991101, end: 20051001
  10. RISPERDAL [Suspect]
     Dosage: 1 MG
     Dates: start: 20020131
  11. RISPERDAL [Suspect]
     Dosage: 1 MG
     Dates: start: 20020131
  12. RISPERDAL [Suspect]
     Dosage: 1 MG
     Dates: start: 20020131
  13. GLUCOPHAGE [Concomitant]
  14. NIASPAN [Concomitant]
     Dosage: 1000 MG
     Dates: start: 20020131
  15. CRESTOR [Concomitant]
  16. COMBIVENT [Concomitant]
  17. PRINIVIL [Concomitant]
  18. COREG [Concomitant]
     Route: 048
     Dates: start: 20040529
  19. LASIX [Concomitant]
     Route: 048
     Dates: start: 20020131
  20. LOPRESSOR [Concomitant]
     Dates: start: 20020131
  21. DEPAKOTE [Concomitant]
     Dates: start: 20020131
  22. PROZAC [Concomitant]
     Dosage: 20 MG
     Dates: start: 20020131

REACTIONS (5)
  - DIABETES MELLITUS [None]
  - DIABETES MELLITUS INADEQUATE CONTROL [None]
  - DIABETIC COMPLICATION [None]
  - DIABETIC NEPHROPATHY [None]
  - NEUROPATHY PERIPHERAL [None]
